FAERS Safety Report 11323995 (Version 8)
Quarter: 2020Q3

REPORT INFORMATION
  Report Type: Report from Study
  Country: DE (occurrence: DE)
  Receive Date: 20150730
  Receipt Date: 20160826
  Transmission Date: 20201105
  Serious: Yes (Death, Life-Threatening, Hospitalization, Other)
  Sender: FDA-Public Use
  Company Number: DE-JNJFOC-20150716701

PATIENT
  Age: 68 Year
  Sex: Female

DRUGS (3)
  1. ACICLOVIR [Concomitant]
     Active Substance: ACYCLOVIR
     Indication: HERPES ZOSTER
     Dosage: UNK
     Route: 048
     Dates: start: 20150513, end: 20150522
  2. IBRUTINIB [Suspect]
     Active Substance: IBRUTINIB
     Indication: EXTRANODAL MARGINAL ZONE B-CELL LYMPHOMA (MALT TYPE)
     Route: 048
     Dates: start: 20150218, end: 20150705
  3. IBRUTINIB [Suspect]
     Active Substance: IBRUTINIB
     Route: 048

REACTIONS (4)
  - Respiratory failure [Not Recovered/Not Resolved]
  - Cerebral haemorrhage [Fatal]
  - Pneumonia [Not Recovered/Not Resolved]
  - Infection [Not Recovered/Not Resolved]

NARRATIVE: CASE EVENT DATE: 20150706
